FAERS Safety Report 6109358-9 (Version None)
Quarter: 2009Q1

REPORT INFORMATION
  Report Type: 
  Country: None (occurrence: None)
  Receive Date: 20090306
  Receipt Date: 20090216
  Transmission Date: 20090719
  Serious: Yes (Other)
  Sender: FDA-Public Use
  Company Number: 062750-2009-00001

PATIENT
  Age: 52 Year
  Sex: Female
  Weight: 52.1637 kg

DRUGS (1)
  1. ZICAM COLD REMEDY ORAL MIST [Suspect]
     Indication: NASOPHARYNGITIS
     Dosage: 1 SINGLE DOSE ORAL
     Route: 048
     Dates: start: 20090205

REACTIONS (2)
  - BLOOD PRESSURE ABNORMAL [None]
  - HYPERSENSITIVITY [None]
